FAERS Safety Report 9290528 (Version 2)
Quarter: 2013Q2

REPORT INFORMATION
  Report Type: Report from Study
  Country: US (occurrence: US)
  Receive Date: 20130515
  Receipt Date: 20130617
  Transmission Date: 20140414
  Serious: Yes (Other)
  Sender: FDA-Public Use
  Company Number: US-NAPPMUNDI-USA-2013-0102124

PATIENT
  Age: 64 Year
  Sex: Male
  Weight: 90.7 kg

DRUGS (2)
  1. OXYCONTIN (NDA 22-272) [Suspect]
     Indication: PRODUCT USED FOR UNKNOWN INDICATION
     Dosage: 80 MG, Q8H
  2. DOXYCYCLINE [Suspect]
     Indication: LOCALISED INFECTION
     Dosage: 100 MG, BID
     Route: 048
     Dates: start: 20130327, end: 20130328

REACTIONS (8)
  - Thermal burn [Recovered/Resolved]
  - Blister [Recovering/Resolving]
  - Laceration [Recovered/Resolved]
  - Localised infection [Recovered/Resolved]
  - Arthralgia [Recovered/Resolved]
  - Joint lock [Recovered/Resolved]
  - Visual impairment [Recovered/Resolved]
  - Tinnitus [Recovered/Resolved]
